FAERS Safety Report 17338323 (Version 1)
Quarter: 2020Q1

REPORT INFORMATION
  Report Type: Spontaneous
  Country: US (occurrence: US)
  Receive Date: 20200113
  Receipt Date: 20200113
  Transmission Date: 20200409
  Serious: Yes (Hospitalization)
  Sender: FDA-Public Use
  Company Number: None

PATIENT
  Age: 80 Year
  Sex: Female

DRUGS (16)
  1. MAGNESIUM SU INJ [Concomitant]
  2. METOPROL TAR [Concomitant]
  3. METOPROLOL INJ [Concomitant]
  4. HYDRALAZINE [Concomitant]
     Active Substance: HYDRALAZINE HYDROCHLORIDE
  5. LASIX [Concomitant]
     Active Substance: FUROSEMIDE
  6. NEORAL [Concomitant]
     Active Substance: CYCLOSPORINE
  7. CALCIUM [Concomitant]
     Active Substance: CALCIUM
  8. POTASSIUM TAB [Concomitant]
  9. PREDNISONE TAB [Concomitant]
     Active Substance: PREDNISONE
  10. ALLOPURINOL. [Suspect]
     Active Substance: ALLOPURINOL
  11. MYCOPHENOLIC 180MG [Suspect]
     Active Substance: MYCOPHENOLIC ACID
     Indication: ORGAN TRANSPLANT
     Route: 048
     Dates: start: 20150327
  12. MAG-OX [Concomitant]
     Active Substance: MAGNESIUM OXIDE
  13. POTCHLORIDE CAP [Concomitant]
  14. XARELTO TAB [Concomitant]
  15. MULTI-VITAMIN TAB [Concomitant]
  16. MYCOPHENOLIC TAB [Concomitant]
     Active Substance: MYCOPHENOLIC ACID

REACTIONS (1)
  - Haemorrhoidal haemorrhage [None]

NARRATIVE: CASE EVENT DATE: 20191220
